FAERS Safety Report 10485512 (Version 3)
Quarter: 2015Q3

REPORT INFORMATION
  Report Type: Report from Study
  Country: US (occurrence: US)
  Receive Date: 20140930
  Receipt Date: 20150716
  Transmission Date: 20151125
  Serious: Yes (Disabling, Other)
  Sender: FDA-Public Use
  Company Number: PHEH2014US019380

PATIENT
  Age: 44 Year
  Sex: Female

DRUGS (1)
  1. GILENYA [Suspect]
     Active Substance: FINGOLIMOD HYDROCHLORIDE
     Indication: MULTIPLE SCLEROSIS
     Dosage: 0.5 MG, QD
     Route: 048
     Dates: start: 20140702

REACTIONS (5)
  - Fall [Unknown]
  - Headache [Unknown]
  - Concussion [Unknown]
  - Retinal neoplasm [Unknown]
  - Visual impairment [Unknown]

NARRATIVE: CASE EVENT DATE: 20150703
